FAERS Safety Report 7804350-8 (Version None)
Quarter: 2011Q4

REPORT INFORMATION
  Report Type: 
  Country: None (occurrence: None)
  Receive Date: 20111010
  Receipt Date: 20110928
  Transmission Date: 20120403
  Serious: Yes (Disabling, Other)
  Sender: FDA-Public Use
  Company Number: JP-UCBSA-042537

PATIENT
  Age: 75 Year
  Sex: Male

DRUGS (4)
  1. XYZAL [Suspect]
     Indication: URTICARIA
     Route: 048
     Dates: start: 20110920, end: 20110901
  2. OLOPATADINE HCL [Concomitant]
     Route: 048
  3. METHADERM [Concomitant]
     Route: 061
  4. HIRUDOID [Concomitant]
     Route: 061

REACTIONS (4)
  - VIITH NERVE PARALYSIS [None]
  - PARALYSIS [None]
  - HEADACHE [None]
  - TRISMUS [None]
